FAERS Safety Report 13447345 (Version 1)
Quarter: 2017Q2

REPORT INFORMATION
  Report Type: Report from Study
  Country: US (occurrence: US)
  Receive Date: 20170417
  Receipt Date: 20170417
  Transmission Date: 20170830
  Serious: Yes (Other)
  Sender: FDA-Public Use
  Company Number: US-BRISTOL-MYERS SQUIBB COMPANY-BMS-2017-030982

PATIENT
  Sex: Female

DRUGS (1)
  1. APIXABAN [Suspect]
     Active Substance: APIXABAN
     Indication: CEREBROVASCULAR ACCIDENT PROPHYLAXIS
     Route: 048

REACTIONS (7)
  - Thrombosis [Unknown]
  - Gingival bleeding [Unknown]
  - Cerebrovascular accident [Unknown]
  - Oral disorder [Unknown]
  - Cardiac ablation [Unknown]
  - Gastric disorder [Unknown]
  - Off label use [Unknown]
